FAERS Safety Report 22937287 (Version 4)
Quarter: 2023Q4

REPORT INFORMATION
  Report Type: Spontaneous
  Country: JP (occurrence: JP)
  Receive Date: 20230913
  Receipt Date: 20231026
  Transmission Date: 20240109
  Serious: Yes (Other)
  Sender: FDA-Public Use
  Company Number: JP-MSD-M2023-37726

PATIENT
  Age: 66 Year
  Sex: Female

DRUGS (5)
  1. LAGEVRIO [Suspect]
     Active Substance: MOLNUPIRAVIR
     Indication: COVID-19 treatment
     Dosage: 800 MILLIGRAM, BID
     Route: 048
     Dates: start: 20230830, end: 20230903
  2. TRANSAMIN [Suspect]
     Active Substance: TRANEXAMIC ACID
     Dosage: 250 MILLIGRAM /DAY
     Route: 048
     Dates: start: 20230830
  3. BEPOTASTINE BESYLATE [Suspect]
     Active Substance: BEPOTASTINE BESYLATE
     Dosage: 2 DOSAGE FORM /DAY
     Route: 048
     Dates: start: 20230830
  4. CALONAL [Suspect]
     Active Substance: ACETAMINOPHEN
     Dosage: 10 MILLIGRAM /DOSE
     Route: 048
     Dates: start: 20230830
  5. AMLODIPINE BESYLATE [Suspect]
     Active Substance: AMLODIPINE BESYLATE
     Dosage: 1 DOSAGE FORM /DAY
     Route: 048
     Dates: start: 20230830

REACTIONS (1)
  - Drug eruption [Recovering/Resolving]

NARRATIVE: CASE EVENT DATE: 20230903
